FAERS Safety Report 4690286-0 (Version None)
Quarter: 2005Q2

REPORT INFORMATION
  Report Type: 
  Country: None (occurrence: None)
  Receive Date: 20050615
  Receipt Date: 20050302
  Transmission Date: 20051028
  Serious: Yes (Hospitalization)
  Sender: FDA-Public Use
  Company Number: JP-GLAXOSMITHKLINE-B0373640A

PATIENT
  Age: 78 Year
  Sex: Female

DRUGS (1)
  1. VALTREX [Suspect]
     Indication: HERPES ZOSTER
     Dosage: 1000MG PER DAY
     Route: 048
     Dates: start: 20050219, end: 20050220

REACTIONS (3)
  - DEPRESSED LEVEL OF CONSCIOUSNESS [None]
  - NERVOUS SYSTEM DISORDER [None]
  - VERTIGO [None]
